FAERS Safety Report 7906536-0 (Version None)
Quarter: 2011Q4

REPORT INFORMATION
  Report Type: 
  Country: None (occurrence: None)
  Receive Date: 20111110
  Receipt Date: 20111107
  Transmission Date: 20120403
  Serious: Yes (Other)
  Sender: FDA-Public Use
  Company Number: US-JNJFOC-20101200644

PATIENT
  Sex: Male

DRUGS (2)
  1. CORTICOSTEROIDS [Suspect]
     Indication: SINUSITIS
     Route: 045
     Dates: start: 20091031
  2. LEVAQUIN [Suspect]
     Indication: SINUSITIS
     Route: 048
     Dates: start: 20070101, end: 20100701

REACTIONS (5)
  - THERAPEUTIC RESPONSE DECREASED [None]
  - TENDON RUPTURE [None]
  - CARPAL TUNNEL SYNDROME [None]
  - HEPATIC ENZYME INCREASED [None]
  - TENDONITIS [None]
